FAERS Safety Report 6552486-4 (Version None)
Quarter: 2010Q1

REPORT INFORMATION
  Report Type: 
  Country: None (occurrence: None)
  Receive Date: 20100126
  Receipt Date: 20100115
  Transmission Date: 20100710
  Serious: Yes (Other)
  Sender: FDA-Public Use
  Company Number: US-SANOFI-AVENTIS-2010SA000954

PATIENT
  Age: 75 Year
  Sex: Male
  Weight: 87 kg

DRUGS (7)
  1. PLAVIX [Suspect]
     Route: 048
     Dates: start: 20060801, end: 20060801
  2. INVESTIGATIONAL DRUG [Suspect]
     Route: 051
     Dates: start: 20060801, end: 20060801
  3. INVESTIGATIONAL DRUG [Suspect]
     Dosage: INFUSION FROM 09:57 TO 12:03
     Route: 051
     Dates: start: 20060801, end: 20060801
  4. PLACEBO [Suspect]
     Route: 048
     Dates: start: 20060801, end: 20060801
  5. MIDAZOLAM HCL [Concomitant]
  6. FENTANYL [Concomitant]
  7. BIVALIRUDIN [Concomitant]
     Route: 065
     Dates: start: 20060801

REACTIONS (1)
  - SINUS BRADYCARDIA [None]
